FAERS Safety Report 4603092-X (Version None)
Quarter: 2005Q1

REPORT INFORMATION
  Report Type: 
  Country: None (occurrence: None)
  Receive Date: 20050307
  Receipt Date: 20050223
  Transmission Date: 20050727
  Serious: Yes (Other)
  Sender: FDA-Public Use
  Company Number: 2005027909

PATIENT
  Age: 76 Year
  Sex: Female

DRUGS (3)
  1. CITALOR (ATORVASTATIN) [Suspect]
     Indication: DYSLIPIDAEMIA
     Dosage: 10 MG (10 MG, 1 IN 1 D), ORAL
     Route: 048
     Dates: start: 19990901
  2. TRAVOPROST (TRAVOPROST) [Concomitant]
  3. TIMOLOL MALEATE [Concomitant]

REACTIONS (1)
  - OCULAR VASCULAR DISORDER [None]
